FAERS Safety Report 21228500 (Version 3)
Quarter: 2023Q2

REPORT INFORMATION
  Report Type: Spontaneous
  Country: BR (occurrence: BR)
  Receive Date: 20220818
  Receipt Date: 20230408
  Transmission Date: 20230722
  Serious: Yes (Other)
  Sender: FDA-Public Use
  Company Number: BR-BAYER-2022P010835

PATIENT
  Age: 62 Year
  Sex: Male

DRUGS (6)
  1. EYLEA [Suspect]
     Active Substance: AFLIBERCEPT
     Indication: Diabetic retinal oedema
     Dosage: 1 DF, ONCE (OD), SOLUTION FOR INJECTION, 40 MG/ML
     Route: 031
     Dates: start: 20220511
  2. VIGAMOX [Concomitant]
     Active Substance: MOXIFLOXACIN HYDROCHLORIDE
     Indication: Product used for unknown indication
     Dosage: USED AFTER THE PROCEDURE
  3. PVPI [Concomitant]
     Indication: Product used for unknown indication
     Dosage: USED BEFORE THE PROCEDURE
  4. LOSARTAN [Concomitant]
     Active Substance: LOSARTAN
     Indication: Hypertension
     Dosage: UNK
  5. METFORMIN [Concomitant]
     Active Substance: METFORMIN HYDROCHLORIDE
     Indication: Type 2 diabetes mellitus
  6. VITAMIN B COMPLEX [Concomitant]
     Active Substance: CYANOCOBALAMIN\DEXPANTHENOL\NIACINAMIDE\PYRIDOXINE HYDROCHLORIDE\RIBOFLAVIN 5^-PHOSPHATE SODIUM\THIA
     Indication: Diabetic neuropathy

REACTIONS (13)
  - Scleritis [Recovered/Resolved]
  - Anterior chamber disorder [Recovering/Resolving]
  - Retinal vasculitis [Recovering/Resolving]
  - Blindness [Not Recovered/Not Resolved]
  - Macular degeneration [Recovered/Resolved with Sequelae]
  - Retinal degeneration [Not Recovered/Not Resolved]
  - Macular thickening [Unknown]
  - Diabetic retinopathy [Not Recovered/Not Resolved]
  - Hypopyon [Recovering/Resolving]
  - Tractional retinal detachment [Recovered/Resolved with Sequelae]
  - Eye inflammation [Recovered/Resolved]
  - Eye pain [Unknown]
  - Vision blurred [Unknown]

NARRATIVE: CASE EVENT DATE: 20220513
